FAERS Safety Report 23828874 (Version 1)
Quarter: 2024Q2

REPORT INFORMATION
  Report Type: Spontaneous
  Country: US (occurrence: US)
  Receive Date: 20240508
  Receipt Date: 20240508
  Transmission Date: 20240716
  Serious: Yes (Disabling)
  Sender: FDA-Public Use
  Company Number: US-SA-SAC20240506001632

PATIENT
  Sex: Female
  Weight: 71.6 kg

DRUGS (1)
  1. DUPIXENT [Suspect]
     Active Substance: DUPILUMAB
     Indication: Asthma
     Dosage: 1 DF, QOW
     Route: 058
     Dates: start: 202403

REACTIONS (4)
  - Loss of personal independence in daily activities [Unknown]
  - Gastroenteritis viral [Unknown]
  - Nausea [Unknown]
  - Injection site pain [Unknown]
